FAERS Safety Report 14671454 (Version 1)
Quarter: 2018Q1

REPORT INFORMATION
  Report Type: Spontaneous
  Country: US (occurrence: US)
  Receive Date: 20180323
  Receipt Date: 20180323
  Transmission Date: 20180509
  Serious: Yes (Other)
  Sender: FDA-Public Use
  Company Number: US-ZYDUS-019319

PATIENT
  Age: 53 Year
  Sex: Male

DRUGS (12)
  1. ETOMIDATE. [Suspect]
     Active Substance: ETOMIDATE
     Indication: INDUCTION OF ANAESTHESIA
     Route: 065
  2. MIDAZOLAM [Suspect]
     Active Substance: MIDAZOLAM HYDROCHLORIDE
     Indication: INDUCTION OF ANAESTHESIA
     Route: 065
  3. HEPARIN [Concomitant]
     Active Substance: HEPARIN SODIUM
     Indication: PRODUCT USED FOR UNKNOWN INDICATION
     Route: 065
  4. GLYCOPYRRONIUM [Concomitant]
     Active Substance: GLYCOPYRRONIUM
     Indication: NEUROMUSCULAR BLOCKADE
     Route: 065
  5. FENTANYL. [Suspect]
     Active Substance: FENTANYL
     Indication: INDUCTION OF ANAESTHESIA
     Route: 065
  6. ISOFLURANE. [Suspect]
     Active Substance: ISOFLURANE
     Indication: MAINTENANCE OF ANAESTHESIA
     Dosage: ISOFLURANE VAPOUR
     Route: 065
  7. VECURONIUM/VECURONIUM BROMIDE [Suspect]
     Active Substance: VECURONIUM BROMIDE
     Indication: MAINTENANCE OF ANAESTHESIA
     Route: 041
  8. PROPOFOL. [Suspect]
     Active Substance: PROPOFOL
     Indication: SEDATIVE THERAPY
     Route: 041
  9. ROCURONIUM/ROCURONIUM BROMIDE [Suspect]
     Active Substance: ROCURONIUM BROMIDE
     Indication: INDUCTION OF ANAESTHESIA
     Route: 065
  10. NEOSTIGMINE [Concomitant]
     Active Substance: NEOSTIGMINE
     Indication: NEUROMUSCULAR BLOCKADE
     Route: 065
  11. FENTANYL. [Suspect]
     Active Substance: FENTANYL
     Indication: MAINTENANCE OF ANAESTHESIA
     Route: 065
  12. PROTAMINE [Concomitant]
     Active Substance: PROTAMINE
     Indication: PRODUCT USED FOR UNKNOWN INDICATION
     Route: 065

REACTIONS (7)
  - Muscle rigidity [Recovered/Resolved]
  - Blood lactic acid increased [None]
  - Hyperthermia malignant [Recovered/Resolved]
  - Anaesthetic complication neurological [Recovered/Resolved]
  - Metabolic acidosis [Recovered/Resolved]
  - Blood creatine phosphokinase increased [Recovered/Resolved]
  - Hyperkalaemia [Recovered/Resolved]
